FAERS Safety Report 8339005 (Version 3)
Quarter: 2013Q3

REPORT INFORMATION
  Report Type: Spontaneous
  Country: SA (occurrence: SA)
  Receive Date: 20120117
  Receipt Date: 20130923
  Transmission Date: 20140515
  Serious: Yes (Other)
  Sender: FDA-Public Use
  Company Number: PHHY2012SA001955

PATIENT
  Sex: Male

DRUGS (7)
  1. CARBOPLATIN [Suspect]
     Indication: NON-SMALL CELL LUNG CANCER
     Dosage: 600 MG, UNK
     Dates: start: 20090210
  2. PACLITAXEL [Suspect]
     Indication: NON-SMALL CELL LUNG CANCER
     Dosage: 175 MG/M2, UNK (TOTAL 350 MG)
     Dates: start: 20090210
  3. BEVACIZUMAB [Suspect]
     Indication: NON-SMALL CELL LUNG CANCER
     Dosage: 10 MG/KG, UNK (TOTAL 750 MG)
     Dates: start: 20090210
  4. DEXAMETHASONE [Concomitant]
  5. RANITIDINE [Concomitant]
  6. DIPHENHYDRAMINE [Concomitant]
  7. GRANISETRON [Concomitant]

REACTIONS (1)
  - Sinus bradycardia [Recovered/Resolved]
